FAERS Safety Report 8214163-3 (Version None)
Quarter: 2012Q1

REPORT INFORMATION
  Report Type: 
  Country: None (occurrence: None)
  Receive Date: 20120316
  Receipt Date: 20120308
  Transmission Date: 20120608
  Serious: Yes (Other)
  Sender: FDA-Public Use
  Company Number: US-BAYER-201033140NA

PATIENT
  Age: 19 Year
  Sex: Female
  Weight: 74.83 kg

DRUGS (14)
  1. ZANTAC [Concomitant]
  2. RANITIDINE [Concomitant]
     Dosage: UNK
     Dates: start: 20051019
  3. HYOSCYAMINE [Concomitant]
     Dosage: UNK
     Dates: start: 20051019
  4. SEPTRA [Concomitant]
  5. ZOLOFT [Concomitant]
  6. PERCOCET [Concomitant]
  7. YASMIN [Suspect]
     Dosage: UNK UNK, QD
     Route: 048
     Dates: start: 20040101, end: 20070101
  8. DARVOCET [Concomitant]
  9. FLUOXETINE HCL [Concomitant]
     Dosage: UNK
     Dates: start: 20051019
  10. LUPRON [Concomitant]
  11. ORTHO TRI-CYCLEN [Concomitant]
  12. ALIMENTARY TRACT AND METABOLISM [Concomitant]
  13. NEXIUM [Concomitant]
  14. PROZAC [Concomitant]
     Indication: DEPRESSION
     Dosage: 50 MG, QD
     Dates: start: 20050722

REACTIONS (11)
  - BILIARY DYSKINESIA [None]
  - ANXIETY [None]
  - FLATULENCE [None]
  - DYSPEPSIA [None]
  - DEPRESSION [None]
  - DIARRHOEA [None]
  - CHOLECYSTITIS [None]
  - GALLBLADDER INJURY [None]
  - ABDOMINAL DISTENSION [None]
  - ABDOMINAL PAIN UPPER [None]
  - CONSTIPATION [None]
